FAERS Safety Report 14602623 (Version 1)
Quarter: 2018Q1

REPORT INFORMATION
  Report Type: Spontaneous
  Country: DE (occurrence: DE)
  Receive Date: 20180306
  Receipt Date: 20180306
  Transmission Date: 20180509
  Serious: Yes (Disabling, Other)
  Sender: FDA-Public Use
  Company Number: DE-TORRENT-00006247

PATIENT
  Age: 47 Year
  Sex: Male
  Weight: 80 kg

DRUGS (1)
  1. LEVOFLOXACIN 500MG [Suspect]
     Active Substance: LEVOFLOXACIN
     Indication: PRODUCT USED FOR UNKNOWN INDICATION
     Dosage: DAILY DOSE: 500 MG MILLGRAM(S) EVERY DAYS
     Route: 048
     Dates: start: 20161114, end: 20161117

REACTIONS (6)
  - Movement disorder [Not Recovered/Not Resolved]
  - Vitreous detachment [Not Recovered/Not Resolved]
  - Paraesthesia [Not Recovered/Not Resolved]
  - Hypoaesthesia [Not Recovered/Not Resolved]
  - Myalgia [Not Recovered/Not Resolved]
  - Tinnitus [Not Recovered/Not Resolved]
